FAERS Safety Report 4882030-9 (Version None)
Quarter: 2006Q1

REPORT INFORMATION
  Report Type: 
  Country: None (occurrence: None)
  Receive Date: 20060117
  Receipt Date: 20051124
  Transmission Date: 20060701
  Serious: Yes (Hospitalization, Other)
  Sender: FDA-Public Use
  Company Number: FRWYE173524NOV05

PATIENT
  Age: 57 Year
  Sex: Female

DRUGS (5)
  1. ENBREL [Suspect]
     Indication: RHEUMATOID ARTHRITIS
     Route: 058
     Dates: start: 20050201, end: 20050408
  2. PREDNISONE [Concomitant]
     Dosage: 10 MG DAILY
     Route: 048
     Dates: start: 19980101
  3. RIFINAH [Concomitant]
     Dosage: UNKNOWN
     Route: 048
     Dates: start: 20050201
  4. METHOTREXATE [Concomitant]
     Dates: start: 19980501
  5. RIFAMPICIN [Concomitant]
     Dates: start: 20050201

REACTIONS (7)
  - ATRIAL FIBRILLATION [None]
  - CHEST PAIN [None]
  - GENERAL PHYSICAL HEALTH DETERIORATION [None]
  - LUNG INFECTION [None]
  - MYCOBACTERIA TISSUE SPECIMEN TEST POSITIVE [None]
  - MYCOBACTERIUM FORTUITUM INFECTION [None]
  - PULMONARY TUBERCULOSIS [None]
